FAERS Safety Report 5527233-5 (Version None)
Quarter: 2007Q4

REPORT INFORMATION
  Report Type: 
  Country: None (occurrence: None)
  Receive Date: 20071121
  Receipt Date: 20071114
  Transmission Date: 20080405
  Serious: Yes (Other)
  Sender: FDA-Public Use
  Company Number: FABR-12276

PATIENT
  Age: 9 Year
  Sex: Male
  Weight: 22.2 kg

DRUGS (3)
  1. FABRAZYME [Suspect]
     Indication: FABRY'S DISEASE
     Dosage: 1 MG/KG Q2WKS IV
     Route: 042
     Dates: start: 20070816
  2. TYLENOL [Concomitant]
  3. BENADRYL [Concomitant]

REACTIONS (9)
  - CATHETER SITE PAIN [None]
  - ERYTHEMA [None]
  - HYPOAESTHESIA [None]
  - INFUSION RELATED REACTION [None]
  - LIP SWELLING [None]
  - PARAESTHESIA [None]
  - PRURITUS [None]
  - RASH [None]
  - SWOLLEN TONGUE [None]
